FAERS Safety Report 16729568 (Version 1)
Quarter: 2019Q3

REPORT INFORMATION
  Report Type: Spontaneous
  Country: US (occurrence: US)
  Receive Date: 20190822
  Receipt Date: 20190822
  Transmission Date: 20191005
  Serious: No
  Sender: FDA-Public Use
  Company Number: US-TEVA-2019-US-1095275

PATIENT
  Sex: Male

DRUGS (1)
  1. CLONAZEPAM ACTAVIS [Suspect]
     Active Substance: CLONAZEPAM
     Dosage: .75 MILLIGRAM DAILY;
     Route: 065
     Dates: start: 201906

REACTIONS (2)
  - Product substitution issue [Unknown]
  - Therapeutic product effect incomplete [Unknown]
